FAERS Safety Report 7166527-7 (Version None)
Quarter: 2010Q4

REPORT INFORMATION
  Report Type: 
  Country: None (occurrence: None)
  Receive Date: 20101216
  Receipt Date: 20101202
  Transmission Date: 20110411
  Serious: Yes (Other)
  Sender: FDA-Public Use
  Company Number: PHHY2010CA82506

PATIENT
  Sex: Female

DRUGS (7)
  1. ALISKIREN ALI+ [Suspect]
     Indication: BLOOD PRESSURE INADEQUATELY CONTROLLED
     Dosage: 150 MG, QD
     Route: 048
     Dates: start: 20100811, end: 20101123
  2. LEVEMIR [Concomitant]
  3. LIPITOR [Concomitant]
  4. ADALAT [Concomitant]
  5. METFORMIN HCL [Concomitant]
  6. DIOVAN [Concomitant]
  7. ASPIRIN [Concomitant]

REACTIONS (1)
  - URINE ALBUMIN/CREATININE RATIO INCREASED [None]
